FAERS Safety Report 15984158 (Version 2)
Quarter: 2019Q3

REPORT INFORMATION
  Report Type: Other
  Country: CA (occurrence: CA)
  Receive Date: 20190220
  Receipt Date: 20190730
  Transmission Date: 20191004
  Serious: Yes (Other)
  Sender: FDA-Public Use
  Company Number: CA-ASTELLAS-2019US006384

PATIENT
  Sex: Female

DRUGS (8)
  1. REMICADE [Suspect]
     Active Substance: INFLIXIMAB
     Indication: IMMUNOSUPPRESSANT DRUG THERAPY
     Dosage: UNK UNK, UNKNOWN FREQ. (POWDER FOR SOLUTION FOR INTRAVENOUS)
     Route: 042
  2. REMICADE [Suspect]
     Active Substance: INFLIXIMAB
     Indication: FOCAL SEGMENTAL GLOMERULOSCLEROSIS
  3. REMICADE [Suspect]
     Active Substance: INFLIXIMAB
     Indication: FOCAL SEGMENTAL GLOMERULOSCLEROSIS
  4. TACROLIMUS. [Suspect]
     Active Substance: TACROLIMUS
     Indication: IMMUNOSUPPRESSANT DRUG THERAPY
     Dosage: UNK UNK, UNKNOWN FREQ.
     Route: 065
  5. TACROLIMUS. [Suspect]
     Active Substance: TACROLIMUS
     Indication: FOCAL SEGMENTAL GLOMERULOSCLEROSIS
  6. INFLIXIMAB [Suspect]
     Active Substance: INFLIXIMAB
     Indication: FOCAL SEGMENTAL GLOMERULOSCLEROSIS
  7. REMICADE [Suspect]
     Active Substance: INFLIXIMAB
     Indication: IMMUNOSUPPRESSANT DRUG THERAPY
     Dosage: UNK UNK, UNKNOWN FREQ.
     Route: 042
  8. INFLIXIMAB [Suspect]
     Active Substance: INFLIXIMAB
     Indication: IMMUNOSUPPRESSANT DRUG THERAPY
     Dosage: UNK UNK, UNKNOWN FREQ.
     Route: 041

REACTIONS (4)
  - Focal segmental glomerulosclerosis [Unknown]
  - Product use in unapproved indication [Unknown]
  - Disease recurrence [Unknown]
  - Off label use [Unknown]
